FAERS Safety Report 22598824 (Version 1)
Quarter: 2023Q2

REPORT INFORMATION
  Report Type: Other
  Country: CA (occurrence: CA)
  Receive Date: 20230614
  Receipt Date: 20230614
  Transmission Date: 20230722
  Serious: Yes (Other)
  Sender: FDA-Public Use
  Company Number: CA-ASTELLAS-2023US017985

PATIENT
  Sex: Female

DRUGS (13)
  1. AMPHOTERICIN B [Suspect]
     Active Substance: AMPHOTERICIN B
     Indication: Antifungal prophylaxis
     Dosage: UNK UNK, UNKNOWN FREQ.
     Route: 065
  2. BETAMETHASONE [Suspect]
     Active Substance: BETAMETHASONE
     Indication: Maternal therapy to enhance foetal lung maturity
     Dosage: UNK UNK, UNKNOWN FREQ.
     Route: 065
  3. CEFUROXIME [Suspect]
     Active Substance: CEFUROXIME
     Indication: Pericoronitis
     Dosage: UNK UNK, UNKNOWN FREQ.
     Route: 065
  4. CEFUROXIME [Suspect]
     Active Substance: CEFUROXIME
     Indication: Febrile neutropenia
  5. CYTARABINE [Suspect]
     Active Substance: CYTARABINE
     Indication: Acute myeloid leukaemia
     Dosage: UNK UNK, UNKNOWN FREQ.
     Route: 037
  6. DAUNORUBICIN HYDROCHLORIDE [Suspect]
     Active Substance: DAUNORUBICIN HYDROCHLORIDE
     Indication: Product used for unknown indication
     Dosage: UNK UNK, UNKNOWN FREQ.
     Route: 042
  7. DINOPROSTONE [Suspect]
     Active Substance: DINOPROSTONE
     Indication: Induction of cervix ripening
     Dosage: UNK UNK, UNKNOWN FREQ.
     Route: 067
  8. MAGNESIUM [Suspect]
     Active Substance: MAGNESIUM
     Indication: Nervous system disorder prophylaxis
     Dosage: UNK UNK, UNKNOWN FREQ.
     Route: 065
  9. MEROPENEM [Suspect]
     Active Substance: MEROPENEM
     Indication: Pericoronitis
     Dosage: UNK UNK, UNKNOWN FREQ.
     Route: 042
  10. MEROPENEM [Suspect]
     Active Substance: MEROPENEM
     Indication: Febrile neutropenia
  11. METRONIDAZOLE [Suspect]
     Active Substance: METRONIDAZOLE
     Indication: Pericoronitis
     Dosage: UNK UNK, UNKNOWN FREQ.
     Route: 065
  12. METRONIDAZOLE [Suspect]
     Active Substance: METRONIDAZOLE
     Indication: Febrile neutropenia
  13. OXYTOCIN [Suspect]
     Active Substance: OXYTOCIN
     Indication: Labour induction
     Dosage: UNK UNK, UNKNOWN FREQ.
     Route: 065

REACTIONS (4)
  - White matter lesion [Recovered/Resolved]
  - Haemoglobin decreased [Recovered/Resolved]
  - Premature delivery [Recovered/Resolved]
  - Exposure during pregnancy [Recovered/Resolved]
